FAERS Safety Report 22939348 (Version 2)
Quarter: 2024Q4

REPORT INFORMATION
  Report Type: Report from Study
  Country: US (occurrence: US)
  Receive Date: 20230913
  Receipt Date: 20241022
  Transmission Date: 20250115
  Serious: No
  Sender: BAYER HEALTHCARE LLC
  Company Number: US-BAYER-2023A118656

PATIENT
  Age: 62 Year
  Sex: Female

DRUGS (2)
  1. ALEVE [Suspect]
     Active Substance: NAPROXEN SODIUM
     Indication: Pain
     Dosage: UNK
  2. ALEVE [Suspect]
     Active Substance: NAPROXEN SODIUM
     Indication: Headache

REACTIONS (1)
  - Drug ineffective [Unknown]
